FAERS Safety Report 12247002 (Version 1)
Quarter: 2016Q2

REPORT INFORMATION
  Report Type: Report from Study
  Country: US (occurrence: US)
  Receive Date: 20160407
  Receipt Date: 20160407
  Transmission Date: 20160815
  Serious: Yes (Hospitalization)
  Sender: FDA-Public Use
  Company Number: US-TAKEDA-TPA2013A06669

PATIENT

DRUGS (6)
  1. PIOGLITAZONE. [Suspect]
     Active Substance: PIOGLITAZONE
     Route: 048
     Dates: start: 20080624, end: 20130418
  2. PLAVIX [Concomitant]
     Active Substance: CLOPIDOGREL BISULFATE
  3. ZOLOFT [Concomitant]
     Active Substance: SERTRALINE HYDROCHLORIDE
  4. LIPITOR [Concomitant]
     Active Substance: ATORVASTATIN CALCIUM
  5. PIOGLITAZONE. [Suspect]
     Active Substance: PIOGLITAZONE
     Route: 048
     Dates: start: 20080527, end: 20080623
  6. PIOGLITAZONE. [Suspect]
     Active Substance: PIOGLITAZONE
     Indication: PRODUCT USED FOR UNKNOWN INDICATION
     Route: 048
     Dates: start: 20080428, end: 20080526

REACTIONS (2)
  - Diverticulitis [Unknown]
  - Lipoma [Recovered/Resolved]

NARRATIVE: CASE EVENT DATE: 20120402
